FAERS Safety Report 19906499 (Version 1)
Quarter: 2021Q3

REPORT INFORMATION
  Report Type: Spontaneous
  Country: US (occurrence: US)
  Receive Date: 20210930
  Receipt Date: 20210930
  Transmission Date: 20211014
  Serious: No
  Sender: FDA-Public Use
  Company Number: US-MYLANLABS-2021M1056188

PATIENT
  Sex: Male

DRUGS (1)
  1. WIXELA INHUB [Suspect]
     Active Substance: FLUTICASONE PROPIONATE\SALMETEROL XINAFOATE
     Indication: PRODUCT USED FOR UNKNOWN INDICATION
     Dosage: 250/50 MICROGRAM, QD, ONE PUFF ONCE A DAY
     Route: 055

REACTIONS (3)
  - Incorrect dose administered [Unknown]
  - Off label use [Not Recovered/Not Resolved]
  - Device issue [Not Recovered/Not Resolved]
